FAERS Safety Report 22026666 (Version 1)
Quarter: 2023Q1

REPORT INFORMATION
  Report Type: Spontaneous
  Country: AE (occurrence: US)
  Receive Date: 20230223
  Receipt Date: 20230223
  Transmission Date: 20230417
  Serious: Yes (Other)
  Sender: FDA-Public Use
  Company Number: US-Blueprint Medicines Corporation-818

PATIENT
  Sex: Male

DRUGS (1)
  1. AYVAKIT [Suspect]
     Active Substance: AVAPRITINIB
     Indication: Gastrointestinal stromal tumour
     Route: 065
     Dates: start: 20230124

REACTIONS (7)
  - Thrombosis [Unknown]
  - Feeling hot [Unknown]
  - Joint stiffness [Unknown]
  - Hypersomnia [Unknown]
  - Erythema [Unknown]
  - Peripheral swelling [Unknown]
  - Abdominal discomfort [Unknown]
